FAERS Safety Report 13267677 (Version 5)
Quarter: 2017Q2

REPORT INFORMATION
  Report Type: Spontaneous
  Country: US (occurrence: US)
  Receive Date: 20170224
  Receipt Date: 20170630
  Transmission Date: 20170830
  Serious: No
  Sender: FDA-Public Use
  Company Number: US-PFIZER INC-2017083849

PATIENT
  Age: 62 Year
  Sex: Male

DRUGS (2)
  1. CHANTIX [Suspect]
     Active Substance: VARENICLINE TARTRATE
     Indication: SMOKING CESSATION THERAPY
     Dosage: UNK
     Dates: start: 2015
  2. L-THYROXINE [Concomitant]
     Active Substance: LEVOTHYROXINE
     Dosage: 200 UG, DAILY

REACTIONS (7)
  - Expired product administered [Unknown]
  - Abnormal dreams [Unknown]
  - Emphysema [Recovered/Resolved]
  - Feeling abnormal [Unknown]
  - Psychomotor hyperactivity [Recovered/Resolved]
  - Stress [Recovered/Resolved]
  - Feeling jittery [Unknown]
